FAERS Safety Report 14186085 (Version 3)
Quarter: 2018Q2

REPORT INFORMATION
  Report Type: Report from Study
  Country: BR (occurrence: BR)
  Receive Date: 20171114
  Receipt Date: 20180510
  Transmission Date: 20180711
  Serious: Yes (Other)
  Sender: FDA-Public Use
  Company Number: BR-ROCHE-2006970

PATIENT
  Age: 72 Year
  Sex: Female
  Weight: 79 kg

DRUGS (4)
  1. XOLAIR [Suspect]
     Active Substance: OMALIZUMAB
     Route: 058
  2. LEVOID [Concomitant]
     Active Substance: LEVOTHYROXINE
     Indication: THYROID DISORDER
     Dosage: 7 YEARS
     Route: 065
  3. XOLAIR [Suspect]
     Active Substance: OMALIZUMAB
     Route: 058
     Dates: start: 20170927
  4. XOLAIR [Suspect]
     Active Substance: OMALIZUMAB
     Indication: URTICARIA
     Route: 058
     Dates: start: 201507

REACTIONS (14)
  - Varicose vein [Not Recovered/Not Resolved]
  - Cardiovascular disorder [Not Recovered/Not Resolved]
  - Product use in unapproved indication [Unknown]
  - Osteoarthritis [Recovering/Resolving]
  - Drug dependence [Unknown]
  - Procedural pain [Recovering/Resolving]
  - Vein rupture [Not Recovered/Not Resolved]
  - Incorrect route of drug administration [Unknown]
  - Body height decreased [Recovering/Resolving]
  - Urticaria [Recovering/Resolving]
  - Spinal disorder [Recovering/Resolving]
  - Hypersensitivity [Recovering/Resolving]
  - Skin ulcer [Not Recovered/Not Resolved]
  - Pruritus generalised [Not Recovered/Not Resolved]

NARRATIVE: CASE EVENT DATE: 20160813
